FAERS Safety Report 10163931 (Version 1)
Quarter: 2014Q2

REPORT INFORMATION
  Report Type: Spontaneous
  Country: US (occurrence: US)
  Receive Date: 20140510
  Receipt Date: 20140510
  Transmission Date: 20141212
  Serious: No
  Sender: FDA-Public Use
  Company Number: US-BRISTOL-MYERS SQUIBB COMPANY-19639723

PATIENT
  Age: 70 Year
  Sex: Male
  Weight: 87.53 kg

DRUGS (1)
  1. BYETTA [Suspect]
     Indication: TYPE 2 DIABETES MELLITUS
     Dosage: DURATION: 2.5YEARS, DOSE REDUCED TO 5MCG TWICE DAILY AND THEN BY OWN REDUCE TO 5MCG ONCE DAILY.

REACTIONS (3)
  - Abdominal discomfort [Recovered/Resolved]
  - Weight fluctuation [Unknown]
  - Drug administration error [Unknown]
